FAERS Safety Report 4401196-8 (Version None)
Quarter: 2004Q3

REPORT INFORMATION
  Report Type: 
  Country: None (occurrence: None)
  Receive Date: 20040907
  Receipt Date: 20031216
  Transmission Date: 20050211
  Serious: No
  Sender: FDA-Public Use
  Company Number: US-BRISTOL-MYERS SQUIBB COMPANY-12459079

PATIENT
  Age: 55 Year
  Sex: Female
  Weight: 106 kg

DRUGS (1)
  1. COUMADIN [Suspect]
     Indication: PULMONARY THROMBOSIS
     Dosage: 2 MG ON MONDAY THROUGH SATURDAY AND 1 MG ON SUNDAY.
     Route: 048
     Dates: start: 20030901

REACTIONS (1)
  - ALOPECIA [None]
